FAERS Safety Report 5422218-1 (Version None)
Quarter: 2007Q3

REPORT INFORMATION
  Report Type: 
  Country: None (occurrence: None)
  Receive Date: 20070821
  Receipt Date: 20070821
  Transmission Date: 20080115
  Serious: Yes (Life-Threatening, Hospitalization)
  Sender: FDA-Public Use
  Company Number: None

PATIENT
  Age: 18 Year
  Sex: Female
  Weight: 47.6277 kg

DRUGS (1)
  1. OXYCONTIN [Suspect]
     Dosage: DAILY

REACTIONS (2)
  - DRUG ABUSER [None]
  - DRUG DEPENDENCE [None]
